FAERS Safety Report 7926911-8 (Version None)
Quarter: 2011Q4

REPORT INFORMATION
  Report Type: 
  Country: None (occurrence: None)
  Receive Date: 20111118
  Receipt Date: 20111114
  Transmission Date: 20120403
  Serious: Yes (Death, Hospitalization)
  Sender: FDA-Public Use
  Company Number: DE-ELI_LILLY_AND_COMPANY-DE201110003489

PATIENT
  Age: 58 Year
  Sex: Male

DRUGS (6)
  1. TORSEMIDE [Concomitant]
  2. TAMSULOSIN HCL [Concomitant]
  3. BYETTA [Suspect]
     Indication: DIABETES MELLITUS
     Route: 058
  4. METFORMIN HCL [Concomitant]
  5. OMEPRAZOLE [Concomitant]
  6. IBUPROFEN [Concomitant]

REACTIONS (5)
  - SEPTIC SHOCK [None]
  - MULTI-ORGAN FAILURE [None]
  - HAEMORRHOIDS [None]
  - POLYP [None]
  - INTESTINAL PERFORATION [None]
